FAERS Safety Report 9363456 (Version 30)
Quarter: 2019Q2

REPORT INFORMATION
  Report Type: Report from Study
  Country: CA (occurrence: CA)
  Receive Date: 20130624
  Receipt Date: 20190531
  Transmission Date: 20190711
  Serious: Yes (Other)
  Sender: FDA-Public Use
  Company Number: CA-ROCHE-1173428

PATIENT
  Age: 53 Year
  Sex: Female
  Weight: 93.9 kg

DRUGS (32)
  1. PREDNISONE. [Suspect]
     Active Substance: PREDNISONE
     Indication: PRODUCT USED FOR UNKNOWN INDICATION
     Route: 065
  2. METHYLPREDNISOLONE. [Suspect]
     Active Substance: METHYLPREDNISOLONE
     Indication: PREMEDICATION
     Route: 042
     Dates: start: 20110615, end: 20130605
  3. LIPITOR [Concomitant]
     Active Substance: ATORVASTATIN CALCIUM
  4. LEVEMIR [Concomitant]
     Active Substance: INSULIN DETEMIR
     Route: 058
  5. TRIATEC [RAMIPRIL] [Concomitant]
     Active Substance: RAMIPRIL
  6. TYLENOL [Concomitant]
     Active Substance: ACETAMINOPHEN
     Route: 065
  7. ASPIRIN [ACETYLSALICYLIC ACID] [Concomitant]
     Active Substance: ASPIRIN
  8. LYRICA [Concomitant]
     Active Substance: PREGABALIN
  9. SOLU-MEDROL [Suspect]
     Active Substance: METHYLPREDNISOLONE SODIUM SUCCINATE
     Indication: PREMEDICATION
     Route: 042
     Dates: start: 20110615
  10. CORTISONE [Suspect]
     Active Substance: CORTISONE\HYDROCORTISONE
     Indication: PRODUCT USED FOR UNKNOWN INDICATION
     Route: 065
  11. FLONASE [Concomitant]
     Active Substance: FLUTICASONE PROPIONATE
     Dosage: 50 MCG/MD
     Route: 065
  12. NOVORAPID [Concomitant]
     Active Substance: INSULIN ASPART
  13. RALIVIA [Concomitant]
     Active Substance: TRAMADOL HYDROCHLORIDE
     Dosage: TABLET - EXTENDED RELEASE
     Route: 065
  14. SYNTHROID [Concomitant]
     Active Substance: LEVOTHYROXINE SODIUM
  15. LOSEC [Concomitant]
     Active Substance: OMEPRAZOLE
  16. ADVAIR HFA [Concomitant]
     Active Substance: FLUTICASONE PROPIONATE\SALMETEROL XINAFOATE
  17. DOCUSATE SODIUM. [Concomitant]
     Active Substance: DOCUSATE SODIUM
  18. HYDROMORPH CONTIN [Concomitant]
     Active Substance: HYDROMORPHONE
     Route: 065
  19. CYCLOBENZAPRINE. [Concomitant]
     Active Substance: CYCLOBENZAPRINE
  20. METHYLPREDNISOLONE. [Suspect]
     Active Substance: METHYLPREDNISOLONE
     Route: 042
     Dates: start: 20131118
  21. ATIVAN [Concomitant]
     Active Substance: LORAZEPAM
  22. DIPHENHYDRAMINE HCL [Concomitant]
     Active Substance: DIPHENHYDRAMINE HYDROCHLORIDE
     Indication: PREMEDICATION
     Route: 048
     Dates: start: 20110615, end: 20120731
  23. SINGULAIR [Concomitant]
     Active Substance: MONTELUKAST SODIUM
  24. BISACODYL. [Concomitant]
     Active Substance: BISACODYL
  25. FUROSEMIDE. [Concomitant]
     Active Substance: FUROSEMIDE
     Indication: BLOOD PRESSURE MEASUREMENT
  26. INSULIN [Concomitant]
     Active Substance: INSULIN NOS
     Dosage: 4 U
     Route: 065
  27. RITUXAN [Suspect]
     Active Substance: RITUXIMAB
     Dosage: LAST INFUSION ON 19/DEC/2017
     Route: 042
     Dates: start: 20150120
  28. VOLTAREN [DICLOFENAC] [Concomitant]
     Active Substance: DICLOFENAC SODIUM
  29. RITUXAN [Suspect]
     Active Substance: RITUXIMAB
     Indication: RHEUMATOID ARTHRITIS
     Dosage: LAST DOSE PRIOR TO SAE: 19/JUN/2014
     Route: 042
     Dates: start: 20110615
  30. RITUXAN [Suspect]
     Active Substance: RITUXIMAB
     Dosage: LAST DOSE PRIOR TO SAE: 19/JUN/2014
     Route: 042
     Dates: start: 201209
  31. ACETAMINOPHEN. [Concomitant]
     Active Substance: ACETAMINOPHEN
     Indication: PREMEDICATION
     Route: 065
     Dates: start: 20110615, end: 20121220
  32. ERGOCALCIFEROL. [Concomitant]
     Active Substance: ERGOCALCIFEROL

REACTIONS (23)
  - Arthralgia [Not Recovered/Not Resolved]
  - Vein disorder [Unknown]
  - Blood pressure systolic increased [Unknown]
  - Heart rate decreased [Unknown]
  - Nausea [Unknown]
  - Dyspnoea [Recovered/Resolved]
  - Blood pressure fluctuation [Unknown]
  - Depression [Unknown]
  - Arthropathy [Unknown]
  - Blood glucose fluctuation [Unknown]
  - Fatigue [Unknown]
  - Diabetic eye disease [Unknown]
  - Pain [Unknown]
  - Blood pressure fluctuation [Unknown]
  - Blood glucose increased [Not Recovered/Not Resolved]
  - Cataract [Not Recovered/Not Resolved]
  - Therapeutic product effect decreased [Unknown]
  - Pain in extremity [Recovered/Resolved]
  - Arthralgia [Recovered/Resolved]
  - Macular degeneration [Not Recovered/Not Resolved]
  - Lung infection [Recovered/Resolved]
  - Blood pressure increased [Unknown]
  - Arthralgia [Not Recovered/Not Resolved]

NARRATIVE: CASE EVENT DATE: 20121220
